FAERS Safety Report 17286701 (Version 2)
Quarter: 2020Q1

REPORT INFORMATION
  Report Type: Report from Study
  Country: None (occurrence: CA)
  Receive Date: 20200119
  Receipt Date: 20200324
  Transmission Date: 20200409
  Serious: Yes (Hospitalization, Other)
  Sender: FDA-Public Use
  Company Number: CA-ABBVIE-20K-028-3235782-00

PATIENT
  Age: 22 Year
  Sex: Female

DRUGS (2)
  1. HUMIRA [Suspect]
     Active Substance: ADALIMUMAB
     Indication: CROHN^S DISEASE
     Route: 058
     Dates: start: 20191217, end: 20200115
  2. HUMIRA [Suspect]
     Active Substance: ADALIMUMAB
     Route: 058
     Dates: start: 20200215, end: 20200215

REACTIONS (5)
  - Abdominal adhesions [Unknown]
  - Abdominal pain [Unknown]
  - Post procedural infection [Unknown]
  - Intestinal resection [Unknown]
  - Pain [Unknown]

NARRATIVE: CASE EVENT DATE: 202001
